FAERS Safety Report 10077356 (Version 2)
Quarter: 2014Q2

REPORT INFORMATION
  Report Type: Spontaneous
  Country: US (occurrence: US)
  Receive Date: 20140414
  Receipt Date: 20140414
  Transmission Date: 20141212
  Serious: No
  Sender: FDA-Public Use
  Company Number: US-BANPHARM-20131401

PATIENT
  Age: 55 Year
  Sex: 0
  Weight: 68.04 kg

DRUGS (3)
  1. ALEVE LIQUID GELS 220 MG [Suspect]
     Dosage: 2 DF, ONCE,
     Route: 048
     Dates: start: 201305, end: 201305
  2. ALEVE LIQUID GELS 220 MG [Suspect]
     Dosage: 1 DF, PRN,
     Route: 048
     Dates: start: 201305, end: 201305
  3. SYNTHROID [Concomitant]

REACTIONS (2)
  - Nausea [Recovered/Resolved]
  - Nausea [Recovered/Resolved]
